FAERS Safety Report 11604536 (Version 3)
Quarter: 2016Q1

REPORT INFORMATION
  Report Type: Spontaneous
  Country: GB (occurrence: GB)
  Receive Date: 20151007
  Receipt Date: 20160217
  Transmission Date: 20160525
  Serious: Yes (Other)
  Sender: FDA-Public Use
  Company Number: GB-ASTELLAS-2015US035690

PATIENT
  Age: 83 Year
  Sex: Female
  Weight: 44 kg

DRUGS (9)
  1. VESICARE [Suspect]
     Active Substance: SOLIFENACIN SUCCINATE
     Indication: NOCTURIA
     Dosage: 5 MG, DAILY
     Route: 048
     Dates: start: 20150928, end: 20150929
  2. ADCAL D3 [Concomitant]
     Active Substance: CALCIUM CARBONATE\CHOLECALCIFEROL
     Indication: PRODUCT USED FOR UNKNOWN INDICATION
     Dosage: UNK UNK, UNKNOWN FREQ.
     Route: 065
  3. HYPROMELLOSE [Concomitant]
     Active Substance: HYPROMELLOSES
     Indication: PRODUCT USED FOR UNKNOWN INDICATION
     Dosage: UNK UNK, UNKNOWN FREQ.
     Route: 065
  4. PARACETAMOL [Concomitant]
     Active Substance: ACETAMINOPHEN
     Indication: PRODUCT USED FOR UNKNOWN INDICATION
     Route: 048
     Dates: start: 20030428
  5. TRAMADOC [Concomitant]
     Active Substance: TRAMADOL HYDROCHLORIDE
     Indication: PRODUCT USED FOR UNKNOWN INDICATION
     Dosage: UNK UNK, UNKNOWN FREQ.
     Route: 065
  6. VESICARE [Suspect]
     Active Substance: SOLIFENACIN SUCCINATE
     Indication: MICTURITION URGENCY
  7. NABUMETONE. [Concomitant]
     Active Substance: NABUMETONE
     Indication: PRODUCT USED FOR UNKNOWN INDICATION
     Route: 048
     Dates: start: 19900731
  8. CETRIZINE [Concomitant]
     Active Substance: CETIRIZINE HYDROCHLORIDE
     Indication: PRODUCT USED FOR UNKNOWN INDICATION
     Dosage: UNK UNK, ONCE DAILY
     Route: 048
     Dates: start: 20111014
  9. GAMOLENIC ACID [Concomitant]
     Active Substance: GAMOLENIC ACID
     Indication: PRODUCT USED FOR UNKNOWN INDICATION
     Dosage: UNK UNK, UNKNOWN FREQ.
     Route: 065

REACTIONS (5)
  - Post viral fatigue syndrome [Unknown]
  - Headache [Recovered/Resolved]
  - Muscular weakness [Recovered/Resolved]
  - Vision blurred [Recovered/Resolved]
  - Balance disorder [Recovered/Resolved]

NARRATIVE: CASE EVENT DATE: 20150928
